FAERS Safety Report 15676538 (Version 1)
Quarter: 2018Q4

REPORT INFORMATION
  Report Type: Spontaneous
  Country: US (occurrence: US)
  Receive Date: 20181130
  Receipt Date: 20181130
  Transmission Date: 20190205
  Serious: Yes (Hospitalization, Other)
  Sender: FDA-Public Use
  Company Number: US-JNJFOC-20181137652

PATIENT
  Age: 74 Year
  Sex: Male
  Weight: 61.2 kg

DRUGS (8)
  1. CARBOPLATIN. [Concomitant]
     Active Substance: CARBOPLATIN
     Dosage: 4 CYCLES
     Route: 065
     Dates: start: 20171101, end: 20180205
  2. PEGFILGRASTIM [Concomitant]
     Active Substance: PEGFILGRASTIM
     Dosage: 3 MONTHS
     Route: 065
     Dates: start: 20171101, end: 20180205
  3. PREDNISONE. [Concomitant]
     Active Substance: PREDNISONE
     Dosage: FOR 3 MONTHS
     Route: 065
     Dates: start: 20170727, end: 20180205
  4. ENZALUTAMIDE [Concomitant]
     Active Substance: ENZALUTAMIDE
     Dosage: 3 MONTHS
     Route: 065
     Dates: start: 20180205, end: 20180509
  5. CABAZITAXEL [Concomitant]
     Active Substance: CABAZITAXEL
     Dosage: 4 CYCLES
     Route: 065
     Dates: start: 20171101, end: 20180205
  6. XOFIGO [Concomitant]
     Active Substance: RADIUM RA-223 DICHLORIDE
     Dosage: FOR 3 MONTHS
     Route: 065
  7. XARELTO [Suspect]
     Active Substance: RIVAROXABAN
     Indication: THROMBOSIS PROPHYLAXIS
     Route: 048
  8. ZYTIGA [Concomitant]
     Active Substance: ABIRATERONE ACETATE
     Dosage: FOR 3 MONTHS
     Route: 065
     Dates: start: 20170727, end: 20171101

REACTIONS (2)
  - Rectal haemorrhage [Unknown]
  - Rectal cancer [Unknown]

NARRATIVE: CASE EVENT DATE: 20181109
